FAERS Safety Report 8889707 (Version 1)
Quarter: 2012Q4

REPORT INFORMATION
  Report Type: 
  Country: US (occurrence: US)
  Receive Date: 20121107
  Receipt Date: 20121107
  Transmission Date: 20130627
  Serious: No
  Sender: FDA-Public Use
  Company Number: US-BIOGENIDEC-2012BI049347

PATIENT
  Age: 27 Year
  Sex: Female

DRUGS (2)
  1. AVONEX [Suspect]
     Indication: MULTIPLE SCLEROSIS
     Route: 030
     Dates: start: 20100722, end: 20110301
  2. AVONEX [Suspect]
     Indication: MULTIPLE SCLEROSIS
     Route: 030
     Dates: start: 20120101

REACTIONS (4)
  - Hallucination [Not Recovered/Not Resolved]
  - Stomatitis [Recovered/Resolved]
  - Euphoric mood [Not Recovered/Not Resolved]
  - Visual impairment [Not Recovered/Not Resolved]
